FAERS Safety Report 25510324 (Version 3)
Quarter: 2025Q4

REPORT INFORMATION
  Report Type: Report from Study
  Country: JP (occurrence: JP)
  Receive Date: 20250703
  Receipt Date: 20251208
  Transmission Date: 20260117
  Serious: Yes (Hospitalization, Other)
  Sender: OTSUKA
  Company Number: JP-MMM-Otsuka-ERBZHY80

PATIENT
  Age: 71 Year
  Sex: Male
  Weight: 50.3 kg

DRUGS (13)
  1. BREXPIPRAZOLE [Suspect]
     Active Substance: BREXPIPRAZOLE
     Indication: Dementia Alzheimer^s type
     Dosage: 0.5 MG, QD
     Dates: start: 20250523, end: 20250604
  2. BREXPIPRAZOLE [Suspect]
     Active Substance: BREXPIPRAZOLE
     Indication: Irritability
  3. BREXPIPRAZOLE [Suspect]
     Active Substance: BREXPIPRAZOLE
     Indication: Aggression
  4. VIBEGRON [Suspect]
     Active Substance: VIBEGRON
     Indication: Disease complication
     Dosage: 50 MG, DAILY
  5. VALPROATE SODIUM [Suspect]
     Active Substance: VALPROATE SODIUM
     Indication: Disease complication
     Dosage: 1000 MG, DAILY
  6. PHENYTOIN [Suspect]
     Active Substance: PHENYTOIN
     Indication: Disease complication
     Dosage: 250 MG, DAILY
  7. ASPIRIN [Concomitant]
     Active Substance: ASPIRIN
     Indication: Disease complication
     Dosage: 100 MG, DAILY
  8. TELMISARTAN [Concomitant]
     Active Substance: TELMISARTAN
     Indication: Disease complication
     Dosage: 40 MG, DAILY
  9. EZETIMIBE [Concomitant]
     Active Substance: EZETIMIBE
     Indication: Disease complication
     Dosage: 10 MG, DAILY
  10. LEVOTHYROXINE SODIUM [Concomitant]
     Active Substance: LEVOTHYROXINE SODIUM
     Indication: Disease complication
     Dosage: 75 MCG, DAILY
  11. FAMOTIDINE [Concomitant]
     Active Substance: FAMOTIDINE
     Indication: Disease complication
     Dosage: 20 MG, DAILY
  12. TICLOPIDINE HYDROCHLORIDE [Concomitant]
     Active Substance: TICLOPIDINE HYDROCHLORIDE
     Indication: Disease complication
     Dosage: 200 MG, DAILY
  13. PRAVASTATIN SODIUM [Concomitant]
     Active Substance: PRAVASTATIN SODIUM
     Indication: Disease complication
     Dosage: 10 MG, DAILY

REACTIONS (2)
  - Dementia Alzheimer^s type [Unknown]
  - Pneumonia aspiration [Recovered/Resolved]

NARRATIVE: CASE EVENT DATE: 20250611
